FAERS Safety Report 12006417 (Version 1)
Quarter: 2016Q1

REPORT INFORMATION
  Report Type: Spontaneous
  Country: US (occurrence: US)
  Receive Date: 20160204
  Receipt Date: 20160204
  Transmission Date: 20160526
  Serious: No
  Sender: FDA-Public Use
  Company Number: US-SHIRE-US201601102

PATIENT
  Age: 9 Year
  Sex: Male
  Weight: 32.65 kg

DRUGS (3)
  1. INTUNIV [Suspect]
     Active Substance: GUANFACINE HYDROCHLORIDE
     Dosage: 1 MG, 1X/DAY:QD (IN THE AFTERNOON AT 4 PM)
     Route: 048
     Dates: start: 20160126
  2. INTUNIV [Suspect]
     Active Substance: GUANFACINE HYDROCHLORIDE
     Indication: PRODUCT USED FOR UNKNOWN INDICATION
     Dosage: 2 MG, 1X/DAY:QD
     Route: 048
     Dates: start: 2015, end: 20160125
  3. INTUNIV [Suspect]
     Active Substance: GUANFACINE HYDROCHLORIDE
     Dosage: 2 MG, 1X/DAY:QD (IN THE MORNING)
     Route: 048
     Dates: start: 20160126

REACTIONS (4)
  - Drug dose titration not performed [Not Recovered/Not Resolved]
  - Inappropriate schedule of drug administration [Not Recovered/Not Resolved]
  - Drug ineffective [Unknown]
  - Vomiting [Unknown]

NARRATIVE: CASE EVENT DATE: 2015
